FAERS Safety Report 8615395-2 (Version None)
Quarter: 2012Q3

REPORT INFORMATION
  Report Type: 
  Country: None (occurrence: None)
  Receive Date: 20120815
  Receipt Date: 20120815
  Transmission Date: 20120928
  Serious: Yes (Life-Threatening)
  Sender: FDA-Public Use
  Company Number: None

PATIENT
  Age: 61 Year
  Sex: Male
  Weight: 87.9978 kg

DRUGS (9)
  1. ZOSYN [Suspect]
     Indication: INFECTION
     Dosage: 3.375G ONCE IV ONE DOSE ONLY
     Route: 042
     Dates: start: 20120403, end: 20120403
  2. CIPROFLOXACIN [Concomitant]
  3. ENALAPRIL MALEATE [Concomitant]
  4. CYANOCOBALAMIN [Concomitant]
  5. NIFEDIPINE [Concomitant]
  6. INSULIN [Concomitant]
  7. ESOMEPRAZOLE SODIUM [Concomitant]
  8. HYDRALAZINE HCL [Concomitant]
  9. FERROUS SULFATE TAB [Concomitant]

REACTIONS (6)
  - RASH [None]
  - VOMITING [None]
  - NAUSEA [None]
  - PRURITUS [None]
  - LIP SWELLING [None]
  - ANAPHYLACTIC REACTION [None]
